FAERS Safety Report 10014404 (Version 1)
Quarter: 2014Q1

REPORT INFORMATION
  Report Type: Spontaneous
  Country: JP (occurrence: JP)
  Receive Date: 20140317
  Receipt Date: 20140317
  Transmission Date: 20141002
  Serious: Yes (Other)
  Sender: FDA-Public Use
  Company Number: JP-BRISTOL-MYERS SQUIBB COMPANY-20494985

PATIENT
  Age: 51 Year
  Sex: Male

DRUGS (2)
  1. METGLUCO [Suspect]
     Route: 048
     Dates: start: 201402
  2. AMARYL [Concomitant]
     Route: 048

REACTIONS (1)
  - Hypopituitarism [Unknown]
